FAERS Safety Report 18282411 (Version 1)
Quarter: 2020Q3

REPORT INFORMATION
  Report Type: Spontaneous
  Country: US (occurrence: US)
  Receive Date: 20200918
  Receipt Date: 20200918
  Transmission Date: 20201103
  Serious: Yes (Other)
  Sender: FDA-Public Use
  Company Number: None

PATIENT
  Age: 67 Year
  Sex: Female
  Weight: 54 kg

DRUGS (2)
  1. COSENTYX [Suspect]
     Active Substance: SECUKINUMAB
     Indication: ANKYLOSING SPONDYLITIS
  2. VIT D [Concomitant]
     Active Substance: VITAMIN D NOS

REACTIONS (4)
  - Wound secretion [None]
  - Poor venous access [None]
  - Psoriasis [None]
  - Swelling face [None]

NARRATIVE: CASE EVENT DATE: 20200826
